FAERS Safety Report 10334120 (Version 1)
Quarter: 2014Q3

REPORT INFORMATION
  Report Type: Report from Study
  Country: FR (occurrence: FR)
  Receive Date: 20140723
  Receipt Date: 20140723
  Transmission Date: 20150326
  Serious: Yes (Other)
  Sender: FDA-Public Use
  Company Number: FR-ROCHE-1436269

PATIENT

DRUGS (1)
  1. OMALIZUMAB [Suspect]
     Active Substance: OMALIZUMAB
     Indication: ASTHMA
     Dosage: MAXIMUM RECOMMENDED DOSE OF SUBCUTANEOUS OMALIZUMAB INJECTION 375 MG EVERY 2 WEEKS; 68 PERCENT OF CH
     Route: 058

REACTIONS (10)
  - Urticaria [Unknown]
  - Anaphylactic reaction [Unknown]
  - Myalgia [Unknown]
  - Injection site pain [Unknown]
  - Fatigue [Unknown]
  - Headache [Unknown]
  - Presyncope [Unknown]
  - Asthenia [Unknown]
  - Abdominal pain [Unknown]
  - Injection site reaction [Unknown]
